FAERS Safety Report 23992616 (Version 2)
Quarter: 2024Q3

REPORT INFORMATION
  Report Type: Spontaneous
  Country: US (occurrence: None)
  Receive Date: 20240620
  Receipt Date: 20240704
  Transmission Date: 20241017
  Serious: Yes (Other)
  Sender: ASTRAZENECA
  Company Number: 2024A125466

PATIENT
  Age: 64 Year
  Sex: Male
  Weight: 83.4 kg

DRUGS (1)
  1. BREZTRI [Suspect]
     Active Substance: BUDESONIDE\FORMOTEROL\GLYCOPYRROLATE
     Dosage: 160
     Route: 055
     Dates: start: 20240524, end: 20240531

REACTIONS (3)
  - Tachycardia [Unknown]
  - Sneezing [Unknown]
  - Therapeutic response shortened [Unknown]
